FAERS Safety Report 4721590-5 (Version None)
Quarter: 2005Q3

REPORT INFORMATION
  Report Type: 
  Country: None (occurrence: None)
  Receive Date: 20050721
  Receipt Date: 20041215
  Transmission Date: 20060218
  Serious: Yes (Hospitalization)
  Sender: FDA-Public Use
  Company Number: US-BRISTOL-MYERS SQUIBB COMPANY-12796249

PATIENT
  Age: 75 Year
  Sex: Male
  Weight: 86 kg

DRUGS (3)
  1. COUMADIN [Suspect]
     Indication: STENT PLACEMENT
     Dosage: VARYING DOSES; 2-5 MG DAILY
     Route: 048
  2. PLAVIX [Suspect]
     Dates: start: 20030101
  3. TOPROL-XL [Suspect]
     Dates: start: 20030101

REACTIONS (2)
  - CONFUSIONAL STATE [None]
  - MYOCARDIAL INFARCTION [None]
